FAERS Safety Report 6696133-X (Version None)
Quarter: 2010Q2

REPORT INFORMATION
  Report Type: 
  Country: None (occurrence: None)
  Receive Date: 20100426
  Receipt Date: 20100416
  Transmission Date: 20101027
  Serious: Yes (Hospitalization, Other)
  Sender: FDA-Public Use
  Company Number: US-AMGEN-QUU400191

PATIENT
  Sex: Female

DRUGS (1)
  1. ENBREL [Suspect]
     Indication: RHEUMATOID ARTHRITIS
     Route: 058

REACTIONS (8)
  - ARTHRALGIA [None]
  - ATRIAL FIBRILLATION [None]
  - BASAL CELL CARCINOMA [None]
  - CARDIAC DISORDER [None]
  - CARDIAC FAILURE CONGESTIVE [None]
  - NASOPHARYNGITIS [None]
  - NEOPLASM SKIN [None]
  - SQUAMOUS CELL CARCINOMA OF SKIN [None]
